FAERS Safety Report 8311835 (Version 3)
Quarter: 2013Q4

REPORT INFORMATION
  Report Type: Spontaneous
  Country: JP (occurrence: JP)
  Receive Date: 20111227
  Receipt Date: 20131118
  Transmission Date: 20140711
  Serious: Yes (Hospitalization, Other)
  Sender: FDA-Public Use
  Company Number: PHHY2011JP110036

PATIENT
  Age: 69 Year
  Sex: Female
  Weight: 47 kg

DRUGS (17)
  1. ZOMETA [Suspect]
     Indication: METASTASES TO BONE
     Dosage: 4 MG (PER ADMINISTRATION)
     Route: 041
     Dates: start: 20060731, end: 201008
  2. ZOMETA [Suspect]
     Dosage: 4 MG (PER ADMINISTRATION)
     Route: 041
     Dates: start: 20101206, end: 20110725
  3. ZOMETA [Suspect]
     Dosage: 4 MG (PER ADMINISTRATION)
     Route: 041
     Dates: start: 20111024
  4. AREDIA [Suspect]
     Indication: METASTASES TO BONE
     Dosage: 90 MG, UNK
     Route: 041
     Dates: start: 20020531, end: 200302
  5. BISPHONAL [Suspect]
     Indication: METASTASES TO BONE
     Dosage: 10 MG, UNK
     Route: 042
     Dates: start: 20030317, end: 200607
  6. LOXONIN [Concomitant]
     Indication: CANCER PAIN
     Dosage: 120 MG, UNK
     Route: 048
     Dates: start: 20030120
  7. ADALAT L [Concomitant]
     Indication: HYPERTENSION
     Dosage: 40 MG, UNK
     Route: 048
     Dates: start: 20021225
  8. DEPAS [Concomitant]
     Indication: ANXIETY DISORDER
     Dosage: 1 MG, UNK
     Route: 048
     Dates: start: 20030120
  9. MARZULENE S [Concomitant]
     Indication: GASTRITIS
     Dosage: 1.34 MG, UNK
     Route: 065
     Dates: start: 20030120
  10. HYSRON [Concomitant]
     Indication: METASTASES TO BONE
     Dosage: 400 MG, UNK
     Route: 048
     Dates: start: 20030623
  11. FURTULON [Concomitant]
     Indication: METASTASES TO BONE
     Dosage: 400 MG, UNK
     Route: 048
     Dates: start: 20030623
  12. LYRICA [Concomitant]
     Indication: NEURALGIA
     Dosage: 150 MG, UNK
     Route: 048
     Dates: start: 20110411
  13. CLARITHROMYCIN [Concomitant]
     Indication: OSTEONECROSIS OF JAW
     Dosage: 400 MG, UNK
     Route: 048
     Dates: start: 20110804
  14. NOLVADEX [Concomitant]
     Indication: BREAST CANCER
     Dosage: 20 MG, UNK
     Route: 048
     Dates: start: 199510, end: 199709
  15. ARIMIDEX [Concomitant]
     Indication: BREAST CANCER
     Dosage: 1 MG, UNK
     Route: 048
     Dates: start: 20020209, end: 200303
  16. AROMASIN [Concomitant]
     Indication: BREAST CANCER
     Dosage: 25 MG, UNK
     Route: 048
     Dates: start: 20030317, end: 200306
  17. RADIOTHERAPY [Concomitant]
     Dates: start: 20020604

REACTIONS (9)
  - Atypical femur fracture [Recovered/Resolved]
  - Fall [Unknown]
  - Breast cancer [Unknown]
  - Malignant neoplasm progression [Unknown]
  - Metastases to bone [Unknown]
  - Metastases to lung [Unknown]
  - Infection [Unknown]
  - Contusion [Unknown]
  - Dental caries [Unknown]
